FAERS Safety Report 9597020 (Version 1)
Quarter: 2013Q4

REPORT INFORMATION
  Report Type: Spontaneous
  Country: US (occurrence: US)
  Receive Date: 20131004
  Receipt Date: 20131004
  Transmission Date: 20140711
  Serious: Yes (Hospitalization, Other)
  Sender: FDA-Public Use
  Company Number: US-ELI_LILLY_AND_COMPANY-US201309009891

PATIENT
  Age: 86 Year
  Sex: Female

DRUGS (2)
  1. HUMULIN 30% REGULAR, 70% NPH [Suspect]
     Indication: TYPE 2 DIABETES MELLITUS
     Dosage: 15 U, EACH MORNING
     Dates: start: 1984
  2. HUMULIN 30% REGULAR, 70% NPH [Suspect]
     Dosage: 10 U, EACH EVENING
     Dates: start: 1984

REACTIONS (5)
  - Road traffic accident [Unknown]
  - Ophthalmic herpes zoster [Recovering/Resolving]
  - Fall [Unknown]
  - Visual impairment [Unknown]
  - Malaise [Unknown]
